FAERS Safety Report 9596896 (Version 3)
Quarter: 2013Q4

REPORT INFORMATION
  Report Type: Spontaneous
  Country: JP (occurrence: JP)
  Receive Date: 20131004
  Receipt Date: 20131022
  Transmission Date: 20140711
  Serious: Yes (Hospitalization)
  Sender: FDA-Public Use
  Company Number: JP-B.I. PHARMACEUTICALS,INC./RIDGEFIELD-2013-BI-30774NB

PATIENT
  Age: 82 Year
  Sex: Male

DRUGS (4)
  1. TRAZENTA [Suspect]
     Dosage: 1 ANZ
     Route: 048
     Dates: start: 20130925, end: 20130929
  2. TRAZENTA [Suspect]
     Dosage: 1 ANZ
     Route: 065
     Dates: start: 20131003
  3. DAONIL [Suspect]
  4. DAONIL [Suspect]
     Dosage: 2 MG
     Route: 048
     Dates: start: 20130925, end: 20130929

REACTIONS (2)
  - Hypoglycaemia [Recovered/Resolved]
  - Altered state of consciousness [Recovered/Resolved]
